FAERS Safety Report 5460728-1 (Version None)
Quarter: 2007Q3

REPORT INFORMATION
  Report Type: 
  Country: None (occurrence: None)
  Receive Date: 20070919
  Receipt Date: 20070913
  Transmission Date: 20080115
  Serious: Yes (Other)
  Sender: FDA-Public Use
  Company Number: US-MERCK-0709USA00999

PATIENT
  Age: 77 Year
  Sex: Female

DRUGS (3)
  1. JANUVIA [Suspect]
     Indication: DIABETES MELLITUS
     Route: 048
  2. METFORMIN [Concomitant]
     Route: 065
  3. AMARYL [Concomitant]
     Route: 065

REACTIONS (1)
  - CONVULSION [None]
